FAERS Safety Report 5330826-1 (Version None)
Quarter: 2007Q2

REPORT INFORMATION
  Report Type: 
  Country: None (occurrence: None)
  Receive Date: 20070518
  Receipt Date: 20070518
  Transmission Date: 20071010
  Serious: No
  Sender: FDA-Public Use
  Company Number: None

PATIENT
  Age: 79 Year
  Sex: Female
  Weight: 82.5547 kg

DRUGS (1)
  1. TYGACIL [Suspect]
     Indication: BACTERAEMIA
     Dosage: 100MG ONCE IV 50MG Q12H IV
     Route: 042
     Dates: start: 20070327

REACTIONS (2)
  - HEPATIC ENZYME INCREASED [None]
  - TRANSAMINASES INCREASED [None]
